FAERS Safety Report 5315082-2 (Version None)
Quarter: 2007Q2

REPORT INFORMATION
  Report Type: 
  Country: None (occurrence: None)
  Receive Date: 20070502
  Receipt Date: 20070420
  Transmission Date: 20071010
  Serious: Yes (Hospitalization, Other)
  Sender: FDA-Public Use
  Company Number: US-PFIZER INC-2006115235

PATIENT
  Sex: Female

DRUGS (3)
  1. CELEBREX [Suspect]
     Indication: OSTEOPOROSIS
     Dates: start: 19990316, end: 20021227
  2. BEXTRA [Suspect]
     Indication: RHEUMATOID ARTHRITIS
  3. VIOXX [Suspect]

REACTIONS (3)
  - DEPRESSION [None]
  - MYOCARDIAL INFARCTION [None]
  - PANIC DISORDER [None]
